FAERS Safety Report 6355774-X (Version None)
Quarter: 2009Q3

REPORT INFORMATION
  Report Type: 
  Country: None (occurrence: None)
  Receive Date: 20090915
  Receipt Date: 20070605
  Transmission Date: 20100115
  Serious: Yes (Other)
  Sender: FDA-Public Use
  Company Number: US-ASTRAZENECA-2006UW10837

PATIENT
  Age: 51 Year
  Sex: Male
  Weight: 114.8 kg

DRUGS (20)
  1. SEROQUEL [Suspect]
     Indication: SCHIZOPHRENIA
     Dosage: 50-200 MG AT NIGHT
     Route: 048
     Dates: start: 20020122
  2. SEROQUEL [Suspect]
     Indication: HALLUCINATION
     Dosage: 50-200 MG AT NIGHT
     Route: 048
     Dates: start: 20020122
  3. SEROQUEL [Suspect]
     Dosage: 900 MG
     Route: 048
  4. SEROQUEL [Suspect]
     Dosage: 900 MG
     Route: 048
  5. ZYPREXA [Suspect]
  6. CLOZARIL [Concomitant]
  7. HALDOL [Concomitant]
  8. NAVANE [Concomitant]
  9. RISPERDAL [Concomitant]
  10. STELAZINE [Concomitant]
  11. THORAZINE [Concomitant]
  12. HYDROCHLOROTHIAZIDE [Concomitant]
     Indication: HYPERTENSION
     Dosage: 25-50 MG DAILY
     Route: 048
     Dates: start: 19990226
  13. LIPITOR [Concomitant]
     Indication: HYPERLIPIDAEMIA
     Route: 048
     Dates: start: 20010214
  14. NITROGLYCERIN [Concomitant]
     Indication: CHEST PAIN
     Route: 060
     Dates: start: 20010214
  15. TRAZODONE [Concomitant]
     Dates: start: 20020605
  16. COGENTIN [Concomitant]
     Route: 048
     Dates: start: 19990226
  17. ASPIRIN [Concomitant]
     Dosage: 81-325 MG DAILY
     Route: 048
     Dates: start: 20030926
  18. ZOCOR [Concomitant]
     Dates: start: 20030926
  19. VASOTEC [Concomitant]
     Route: 048
     Dates: start: 20050512
  20. NORVASC [Concomitant]
     Dosage: TWICE A DAY
     Dates: start: 20060214

REACTIONS (5)
  - DIABETES MELLITUS [None]
  - DIABETIC NEUROPATHY [None]
  - KETOACIDOSIS [None]
  - TYPE 2 DIABETES MELLITUS [None]
  - VISION BLURRED [None]
